FAERS Safety Report 25548872 (Version 1)
Quarter: 2025Q3

REPORT INFORMATION
  Report Type: Spontaneous
  Country: US (occurrence: None)
  Receive Date: 20250713
  Receipt Date: 20250713
  Transmission Date: 20251021
  Serious: Yes (Other)
  Sender: FDA-CTU
  Company Number: None

PATIENT
  Age: 42 Year
  Sex: Female
  Weight: 85.05 kg

DRUGS (3)
  1. EFFEXOR [Suspect]
     Active Substance: VENLAFAXINE HYDROCHLORIDE
  2. ALEVE [Concomitant]
     Active Substance: NAPROXEN SODIUM
  3. TYLENOL [Concomitant]
     Active Substance: ACETAMINOPHEN

REACTIONS (13)
  - Weight increased [None]
  - Apathy [None]
  - Oedema peripheral [None]
  - Electric shock sensation [None]
  - Anxiety [None]
  - Agoraphobia [None]
  - Limb discomfort [None]
  - Muscle spasms [None]
  - Impaired work ability [None]
  - Presyncope [None]
  - Dyspnoea [None]
  - Off label use [None]
  - Drug withdrawal syndrome [None]

NARRATIVE: CASE EVENT DATE: 20220119
